FAERS Safety Report 4718643-4 (Version None)
Quarter: 2005Q3

REPORT INFORMATION
  Report Type: 
  Country: None (occurrence: None)
  Receive Date: 20050720
  Receipt Date: 20050714
  Transmission Date: 20060218
  Serious: Yes (Other)
  Sender: FDA-Public Use
  Company Number: IT-GLAXOSMITHKLINE-B0388184A

PATIENT
  Age: 91 Year
  Sex: Male

DRUGS (6)
  1. AVODART [Suspect]
     Indication: BENIGN PROSTATIC HYPERPLASIA
     Dosage: .5MG PER DAY
     Route: 048
     Dates: start: 20050522, end: 20050530
  2. ALFUZOSIN [Concomitant]
     Indication: CARDIAC DISORDER
     Route: 048
  3. DIGOXIN [Concomitant]
     Indication: CARDIAC DISORDER
     Route: 048
  4. DORZOLAMIDE [Concomitant]
     Indication: DRUG USE FOR UNKNOWN INDICATION
     Route: 061
  5. GLYCERYL TRINITRATE [Concomitant]
     Indication: CARDIAC DISORDER
  6. WARFARIN SODIUM [Concomitant]
     Indication: CARDIAC DISORDER
     Route: 048

REACTIONS (2)
  - DYSPNOEA [None]
  - ORTHOPNOEA [None]
